FAERS Safety Report 8443399-1 (Version None)
Quarter: 2012Q2

REPORT INFORMATION
  Report Type: 
  Country: None (occurrence: None)
  Receive Date: 20120618
  Receipt Date: 20120605
  Transmission Date: 20120825
  Serious: Yes (Hospitalization)
  Sender: FDA-Public Use
  Company Number: GB-RANBAXY-2012R1-57131

PATIENT
  Age: 50 Year
  Sex: Female

DRUGS (2)
  1. AMLODIPINE BESYLATE [Suspect]
     Indication: BLOOD PRESSURE
     Dosage: UNK
     Route: 048
  2. LOSARTAN POTASSIUM [Suspect]
     Indication: BLOOD PRESSURE
     Dosage: UNK
     Route: 048

REACTIONS (11)
  - METABOLIC ACIDOSIS [None]
  - MULTIPLE DRUG OVERDOSE INTENTIONAL [None]
  - VOMITING [None]
  - RENAL IMPAIRMENT [None]
  - HYPERKALAEMIA [None]
  - HYPOXIA [None]
  - DRUG RESISTANCE [None]
  - HYPOTENSION [None]
  - INTENTIONAL OVERDOSE [None]
  - PULMONARY OEDEMA [None]
  - ANURIA [None]
